FAERS Safety Report 7779226-5 (Version None)
Quarter: 2011Q3

REPORT INFORMATION
  Report Type: 
  Country: None (occurrence: None)
  Receive Date: 20110926
  Receipt Date: 20110916
  Transmission Date: 20111222
  Serious: Yes (Other)
  Sender: FDA-Public Use
  Company Number: US-ASTRAZENECA-2011SE56055

PATIENT
  Age: 50 Year

DRUGS (10)
  1. HYDROCHLOROTHIAZIDE [Concomitant]
     Route: 048
     Dates: start: 20100819
  2. CRESTOR [Suspect]
     Route: 048
     Dates: start: 20100819
  3. PREVACID [Concomitant]
     Route: 048
     Dates: start: 20110609
  4. ZOLOFT [Concomitant]
     Route: 048
     Dates: start: 20100819
  5. OXYCODONE HCL [Concomitant]
     Indication: PAIN
     Dosage: 10 MG, 1 OR 2 TABLETS EVERY 4 HOURS AS NEEDED
     Route: 048
     Dates: start: 20101209
  6. LISINOPRIL [Suspect]
     Route: 048
     Dates: start: 20100819
  7. ARIMIDEX [Concomitant]
     Route: 048
     Dates: start: 20110801
  8. WARFARIN SODIUM [Concomitant]
     Dosage: 5 MG, HALF A TABLET ON TUESDAYS AND THURSDAYS, 1 TABLET ON OTHER DAYS OF THE WEEK
     Route: 048
     Dates: start: 20101019
  9. NABUMETONE [Concomitant]
     Dosage: 500 MG, 1 TABLET EVERY 12 HOURS AS NEEDED
     Route: 048
     Dates: start: 20110131
  10. POTASSIUM CHLORIDE CRYS CR [Concomitant]
     Route: 048
     Dates: start: 20110609

REACTIONS (3)
  - PAIN [None]
  - CYSTITIS [None]
  - BREAST CANCER [None]
